FAERS Safety Report 17544683 (Version 1)
Quarter: 2020Q1

REPORT INFORMATION
  Report Type: Spontaneous
  Country: ES (occurrence: ES)
  Receive Date: 20200316
  Receipt Date: 20200316
  Transmission Date: 20200409
  Serious: Yes (Life-Threatening, Hospitalization, Other)
  Sender: FDA-Public Use
  Company Number: ES-ACCORD-175743

PATIENT
  Age: 59 Year
  Sex: Male

DRUGS (2)
  1. OLANZAPINE. [Interacting]
     Active Substance: OLANZAPINE
     Indication: MANIA
     Route: 048
     Dates: start: 20200127, end: 20200128
  2. CLONAZEPAM. [Suspect]
     Active Substance: CLONAZEPAM
     Indication: MANIA
     Route: 048
     Dates: start: 20200127, end: 20200128

REACTIONS (2)
  - Drug interaction [Unknown]
  - Coma [Recovered/Resolved]

NARRATIVE: CASE EVENT DATE: 20200128
